FAERS Safety Report 17850647 (Version 1)
Quarter: 2020Q2

REPORT INFORMATION
  Report Type: Spontaneous
  Country: US (occurrence: US)
  Receive Date: 20200602
  Receipt Date: 20200602
  Transmission Date: 20200714
  Serious: Yes (Other)
  Sender: FDA-Public Use
  Company Number: None

PATIENT
  Age: 52 Year
  Sex: Female
  Weight: 65.7 kg

DRUGS (3)
  1. BENZTROPINE. [Concomitant]
     Active Substance: BENZTROPINE
  2. FLUPHENAZINE DECANOATE. [Concomitant]
     Active Substance: FLUPHENAZINE DECANOATE
  3. AUSTEDO [Suspect]
     Active Substance: DEUTETRABENAZINE
     Indication: TARDIVE DYSKINESIA
     Route: 048

REACTIONS (2)
  - Therapy interrupted [None]
  - Tremor [None]

NARRATIVE: CASE EVENT DATE: 20200602
